FAERS Safety Report 22227584 (Version 9)
Quarter: 2025Q3

REPORT INFORMATION
  Report Type: Report from Study
  Country: ZA (occurrence: ZA)
  Receive Date: 20230419
  Receipt Date: 20250818
  Transmission Date: 20251020
  Serious: Yes (Other)
  Sender: TAKEDA
  Company Number: ZA-TAKEDA-2022TUS042809

PATIENT
  Sex: Male
  Weight: 103 kg

DRUGS (3)
  1. VEDOLIZUMAB [Suspect]
     Active Substance: VEDOLIZUMAB
     Indication: Colitis ulcerative
     Dates: start: 20210621, end: 20240122
  2. VEDOLIZUMAB [Suspect]
     Active Substance: VEDOLIZUMAB
  3. SAGE [Concomitant]
     Active Substance: SAGE

REACTIONS (3)
  - Diabetes mellitus [Unknown]
  - Inappropriate schedule of product administration [Recovered/Resolved]
  - Inability to afford medication [Unknown]
